FAERS Safety Report 19230630 (Version 1)
Quarter: 2021Q2

REPORT INFORMATION
  Report Type: Spontaneous
  Country: US (occurrence: US)
  Receive Date: 20210506
  Receipt Date: 20210506
  Transmission Date: 20210717
  Serious: Yes (Other)
  Sender: FDA-Public Use
  Company Number: None

PATIENT
  Age: 70 Year
  Sex: Female
  Weight: 48.6 kg

DRUGS (5)
  1. SYNTHROID [Concomitant]
     Active Substance: LEVOTHYROXINE SODIUM
  2. METHOTREXATE. [Concomitant]
     Active Substance: METHOTREXATE
  3. FOLIC ACID. [Concomitant]
     Active Substance: FOLIC ACID
  4. LANTUS SOLOSTAR [Suspect]
     Active Substance: INSULIN GLARGINE
     Indication: PANCREATOGENOUS DIABETES
     Dosage: ?          QUANTITY:90 INJECTION(S);OTHER ROUTE:NOT USED. UNCONTROLLED ILLEGALLY LABELED?
  5. LANTUS SOLOSTAR GLARGINE [Concomitant]

REACTIONS (3)
  - Product distribution issue [None]
  - Therapy interrupted [None]
  - Product storage error [None]

NARRATIVE: CASE EVENT DATE: 20210422
